FAERS Safety Report 5769915-6 (Version None)
Quarter: 2008Q2

REPORT INFORMATION
  Report Type: 
  Country: None (occurrence: None)
  Receive Date: 20080613
  Receipt Date: 20080606
  Transmission Date: 20081010
  Serious: Yes (Other)
  Sender: FDA-Public Use
  Company Number: NL-RANBAXY-2008RR-14983

PATIENT

DRUGS (3)
  1. ACETAMINOPHEN [Suspect]
     Indication: ANALGESIA
     Route: 048
  2. FLOXACILLIN SODIUM [Suspect]
     Dosage: 12 G, QD
     Route: 042
  3. CLINDAMYCIN [Concomitant]

REACTIONS (2)
  - DRUG INTERACTION [None]
  - METABOLIC ACIDOSIS [None]
